FAERS Safety Report 8206277-9 (Version None)
Quarter: 2012Q1

REPORT INFORMATION
  Report Type: 
  Country: None (occurrence: None)
  Receive Date: 20120313
  Receipt Date: 20120303
  Transmission Date: 20120608
  Serious: Yes (Hospitalization)
  Sender: FDA-Public Use
  Company Number: PHEH2012US002855

PATIENT
  Sex: Male

DRUGS (6)
  1. EXJADE [Suspect]
     Indication: IRON METABOLISM DISORDER
     Dosage: 1000 MG, QD
     Route: 048
  2. EXJADE [Suspect]
     Dosage: ONE FULL TAB
  3. EXJADE [Suspect]
     Dosage: HALF OF 500 MG
  4. FUROSEMIDE [Concomitant]
     Dosage: 60 MG, BID
  5. COUMADIN [Concomitant]
  6. EXJADE [Suspect]
     Dosage: UNK UKN, UNK
     Route: 048
     Dates: end: 20120126

REACTIONS (4)
  - WOUND HAEMORRHAGE [None]
  - DIARRHOEA [None]
  - EPISTAXIS [None]
  - DRY MOUTH [None]
